FAERS Safety Report 6781969-7 (Version None)
Quarter: 2010Q2

REPORT INFORMATION
  Report Type: 
  Country: None (occurrence: None)
  Receive Date: 20100621
  Receipt Date: 20100609
  Transmission Date: 20101027
  Serious: Yes (Hospitalization)
  Sender: FDA-Public Use
  Company Number: IE-PFIZER INC-2010072519

PATIENT
  Age: 51 Year
  Sex: Female

DRUGS (1)
  1. PHENYTOIN SODIUM CAP [Suspect]
     Indication: EPILEPSY
     Dosage: 250MG/5ML
     Dates: start: 20100601

REACTIONS (2)
  - CELLULITIS [None]
  - INJECTION SITE IRRITATION [None]
